FAERS Safety Report 13701090 (Version 1)
Quarter: 2017Q2

REPORT INFORMATION
  Report Type: Spontaneous
  Country: IT (occurrence: IT)
  Receive Date: 20170629
  Receipt Date: 20170629
  Transmission Date: 20170830
  Serious: Yes (Hospitalization, Other)
  Sender: FDA-Public Use
  Company Number: IT-BAYER-2017-120173

PATIENT
  Age: 60 Year
  Sex: Male

DRUGS (5)
  1. ASPIRINA 500 MG [Suspect]
     Active Substance: ASPIRIN
     Dosage: DOSAGE NOT INDICATED
     Route: 048
  2. ALDACTONE A [Concomitant]
     Active Substance: SPIRONOLACTONE
     Route: 048
  3. RIOPAN [Concomitant]
     Active Substance: MAGALDRATE
     Route: 048
  4. OMEPRAZEN [Concomitant]
     Active Substance: OMEPRAZOLE
  5. TRIATEC [Concomitant]
     Active Substance: RAMIPRIL
     Route: 048

REACTIONS (3)
  - Pain [Recovering/Resolving]
  - Ecchymosis [Recovering/Resolving]
  - Haemorrhage subcutaneous [Recovering/Resolving]

NARRATIVE: CASE EVENT DATE: 20170424
